FAERS Safety Report 10241804 (Version 1)
Quarter: 2014Q2

REPORT INFORMATION
  Report Type: Report from Study
  Country: CA (occurrence: CA)
  Receive Date: 20140617
  Receipt Date: 20140617
  Transmission Date: 20141212
  Serious: Yes (Other)
  Sender: FDA-Public Use
  Company Number: CA-JNJFOC-20140606070

PATIENT
  Age: 59 Year
  Sex: Female
  Weight: 88 kg

DRUGS (4)
  1. SIMPONI [Suspect]
     Indication: RHEUMATOID ARTHRITIS
     Route: 058
     Dates: start: 20100604
  2. SIMPONI [Suspect]
     Indication: RHEUMATOID ARTHRITIS
     Route: 058
     Dates: start: 20140604, end: 20140609
  3. METHOTREXATE [Concomitant]
     Route: 065
  4. GABAPENTIN [Concomitant]
     Route: 065

REACTIONS (2)
  - Bradycardia [Recovering/Resolving]
  - Flushing [Recovering/Resolving]
